FAERS Safety Report 15372195 (Version 1)
Quarter: 2018Q3

REPORT INFORMATION
  Report Type: Spontaneous
  Country: US (occurrence: US)
  Receive Date: 20180911
  Receipt Date: 20180911
  Transmission Date: 20181010
  Serious: Yes (Hospitalization)
  Sender: FDA-Public Use
  Company Number: US-ACTELION-A-US2018-176234

PATIENT
  Age: 74 Year
  Sex: Male

DRUGS (1)
  1. OPSUMIT [Suspect]
     Active Substance: MACITENTAN
     Indication: PULMONARY ARTERIAL HYPERTENSION
     Dosage: 10 MG, QD
     Route: 048
     Dates: start: 20180704, end: 20180824

REACTIONS (6)
  - Therapy non-responder [Unknown]
  - Cardiac failure congestive [Unknown]
  - Pulmonary arterial hypertension [Unknown]
  - Condition aggravated [Unknown]
  - Dyspnoea [Not Recovered/Not Resolved]
  - Malaise [Unknown]

NARRATIVE: CASE EVENT DATE: 20180824
